FAERS Safety Report 5959125-1 (Version None)
Quarter: 2008Q4

REPORT INFORMATION
  Report Type: 
  Country: None (occurrence: None)
  Receive Date: 20081120
  Receipt Date: 20080117
  Transmission Date: 20090506
  Serious: No
  Sender: FDA-Public Use
  Company Number: A0703868A

PATIENT
  Age: 41 Year
  Sex: Female

DRUGS (3)
  1. BUPROPION HYDROCHLORIDE [Suspect]
     Indication: DEPRESSION
     Dosage: 150MG TWICE PER DAY
     Route: 048
     Dates: start: 20070201
  2. ALBUTEROL [Concomitant]
  3. SINGULAIR [Concomitant]

REACTIONS (3)
  - ANOREXIA [None]
  - INSOMNIA [None]
  - TOBACCO ABUSE [None]
